FAERS Safety Report 12308829 (Version 1)
Quarter: 2016Q2

REPORT INFORMATION
  Report Type: Spontaneous
  Country: US (occurrence: US)
  Receive Date: 20160427
  Receipt Date: 20160427
  Transmission Date: 20160815
  Serious: No
  Sender: FDA-Public Use
  Company Number: US-009507513-1604USA012948

PATIENT
  Age: 86 Year
  Sex: Female

DRUGS (3)
  1. ERYTHROMYCIN. [Interacting]
     Active Substance: ERYTHROMYCIN
  2. EFFEXOR [Interacting]
     Active Substance: VENLAFAXINE HYDROCHLORIDE
     Indication: DEPRESSION
     Dosage: UNK, QD
  3. REMERON [Suspect]
     Active Substance: MIRTAZAPINE
     Indication: DEPRESSION
     Dosage: 15 MG, BID
     Route: 048
     Dates: start: 201508

REACTIONS (7)
  - Sinusitis [Unknown]
  - Drug interaction [Unknown]
  - Mood altered [Unknown]
  - Paranoia [Unknown]
  - Decreased appetite [Unknown]
  - Drug ineffective [Unknown]
  - Diarrhoea [Unknown]
